FAERS Safety Report 18326736 (Version 1)
Quarter: 2020Q3

REPORT INFORMATION
  Report Type: Spontaneous
  Country: IE (occurrence: IE)
  Receive Date: 20200930
  Receipt Date: 20200930
  Transmission Date: 20201103
  Serious: Yes (Other)
  Sender: FDA-Public Use
  Company Number: IE-SAMSUNG BIOEPIS-SB-2020-29559

PATIENT
  Age: 34 Year
  Sex: Male

DRUGS (4)
  1. INFLIXIMAB [Suspect]
     Active Substance: INFLIXIMAB
     Dosage: REGULAR INFUSIONS
     Route: 065
     Dates: start: 2014, end: 2019
  2. INFLIXIMAB [Suspect]
     Active Substance: INFLIXIMAB
     Indication: COLITIS ULCERATIVE
     Dosage: 18?JUN?2020 AND 06?JUL?2020 GIVEN TWO WEEKS APART (LOADING DOSE 400MG)
     Route: 042
     Dates: start: 20200618
  3. SALOFALK [Concomitant]
     Indication: PRODUCT USED FOR UNKNOWN INDICATION
     Dosage: UNKNOWN. CONTINUING
     Route: 065
  4. INFLIXIMAB [Suspect]
     Active Substance: INFLIXIMAB
     Dosage: 18?JUN?2020 AND 06?JUL?2020 GIVEN TWO WEEKS APART (LOADING DOSE 400 MG)
     Route: 041
     Dates: start: 20200706

REACTIONS (4)
  - Ocular hyperaemia [Recovered/Resolved]
  - Erythema [Recovered/Resolved]
  - Dyspnoea [Recovered/Resolved]
  - Chest discomfort [Recovered/Resolved]

NARRATIVE: CASE EVENT DATE: 20200706
